FAERS Safety Report 5305133-3 (Version None)
Quarter: 2007Q2

REPORT INFORMATION
  Report Type: 
  Country: None (occurrence: None)
  Receive Date: 20070417
  Receipt Date: 20070330
  Transmission Date: 20071010
  Serious: Yes (Hospitalization)
  Sender: FDA-Public Use
  Company Number: 220002N07USA

PATIENT
  Age: 10 Year
  Sex: Male
  Weight: 29.1 kg

DRUGS (6)
  1. SAIZEN [Suspect]
     Indication: GROWTH HORMONE DEFICIENCY
  2. DESMOPRESSIN [Concomitant]
  3. LEVOTHYROXINE SODIUM [Concomitant]
  4. MONTELUKAST SODIUM [Concomitant]
  5. FLUTICASONE PROPIONATE [Concomitant]
  6. SALBUTAMOL [Concomitant]

REACTIONS (2)
  - GERM CELL CANCER [None]
  - PITUITARY ENLARGEMENT [None]
